FAERS Safety Report 20583082 (Version 2)
Quarter: 2022Q2

REPORT INFORMATION
  Report Type: Spontaneous
  Country: US (occurrence: US)
  Receive Date: 20220311
  Receipt Date: 20220419
  Transmission Date: 20220721
  Serious: Yes (Hospitalization, Other)
  Sender: FDA-Public Use
  Company Number: US-BIOVITRUM-2022US03367

PATIENT
  Age: 0 Year
  Sex: Female
  Weight: 5 kg

DRUGS (2)
  1. SYNAGIS [Suspect]
     Active Substance: PALIVIZUMAB
     Indication: Fallot^s tetralogy
     Route: 030
     Dates: start: 202201
  2. SYNAGIS [Suspect]
     Active Substance: PALIVIZUMAB
     Dosage: 100MG/1.0ML,0.8ML?100MG/1.0ML,15MG/KG*6.4KG=96MG
     Route: 030

REACTIONS (2)
  - Hypoxia [Unknown]
  - Cyanosis [Unknown]

NARRATIVE: CASE EVENT DATE: 20220212
